FAERS Safety Report 9725611 (Version 1)
Quarter: 2013Q4

REPORT INFORMATION
  Report Type: Spontaneous
  Country: US (occurrence: None)
  Receive Date: 20131202
  Receipt Date: 20131202
  Transmission Date: 20140711
  Serious: Yes (Disabling)
  Sender: FDA-Public Use
  Company Number: None

PATIENT
  Age: 72 Year
  Sex: Female
  Weight: 58.97 kg

DRUGS (2)
  1. BIOTIN [Suspect]
     Indication: HAIR DISORDER
     Dosage: 1 CAPSULE, ONCE DAILY
     Dates: start: 20120117, end: 20130705
  2. BIOTIN [Suspect]
     Indication: NAIL DISORDER
     Dosage: 1 CAPSULE, ONCE DAILY
     Dates: start: 20120117, end: 20130705

REACTIONS (2)
  - Blood testosterone increased [None]
  - Scan adrenal gland abnormal [None]
